FAERS Safety Report 6550748-8 (Version None)
Quarter: 2010Q1

REPORT INFORMATION
  Report Type: 
  Country: None (occurrence: None)
  Receive Date: 20100125
  Receipt Date: 20100113
  Transmission Date: 20100710
  Serious: Yes (Hospitalization, Other)
  Sender: FDA-Public Use
  Company Number: PHHY2009DE48765

PATIENT
  Age: 71 Year
  Sex: Male

DRUGS (9)
  1. EXJADE [Suspect]
     Indication: MYELODYSPLASTIC SYNDROME
     Dosage: 500 MG DAILY
     Route: 048
     Dates: start: 20091001, end: 20091101
  2. EXJADE [Suspect]
     Indication: HAEMOSIDEROSIS
  3. VOLTAREN [Suspect]
     Indication: GOUT
     Dosage: UNK
  4. FUROSEMIDE [Concomitant]
  5. RAMIPRIL [Concomitant]
  6. TRANSFUSIONS [Concomitant]
     Dosage: UNK
  7. ANALGESICS [Concomitant]
  8. DIURETICS [Concomitant]
  9. ACE INHIBITOR NOS [Concomitant]

REACTIONS (5)
  - DEHYDRATION [None]
  - GOUT [None]
  - RENAL FAILURE ACUTE [None]
  - URINARY HESITATION [None]
  - URINE OUTPUT DECREASED [None]
